FAERS Safety Report 4502499-9 (Version None)
Quarter: 2004Q4

REPORT INFORMATION
  Report Type: 
  Country: None (occurrence: None)
  Receive Date: 20041112
  Receipt Date: 20041105
  Transmission Date: 20050328
  Serious: Yes (Hospitalization)
  Sender: FDA-Public Use
  Company Number: HQWYE260005NOV04

PATIENT
  Sex: Male

DRUGS (2)
  1. INIPOMP (PANTOPRAZOLE ) [Suspect]
  2. UNSPECIFIED NON-STEROIDAL ANTI-INFLAMMATORY AGENT (UNSPECIFIED NON-STE [Concomitant]

REACTIONS (2)
  - HAEMATURIA [None]
  - NEPHRITIS [None]
